FAERS Safety Report 20549683 (Version 2)
Quarter: 2022Q3

REPORT INFORMATION
  Report Type: Spontaneous
  Country: FR (occurrence: FR)
  Receive Date: 20220304
  Receipt Date: 20220826
  Transmission Date: 20221026
  Serious: Yes (Hospitalization, Other)
  Sender: FDA-Public Use
  Company Number: FR-AFSSAPS-LY20221680

PATIENT
  Age: 56 Year
  Sex: Female
  Weight: 55 kg

DRUGS (2)
  1. CARBOPLATIN [Suspect]
     Active Substance: CARBOPLATIN
     Indication: Ovarian cancer
     Dosage: 750 MILLIGRAM, 1 TOTAL  (COURSE 1 OF CARBOPLATIN AUC 6 (750MG) PACLITAXEL 175MG/M? (285MG))
     Route: 042
     Dates: start: 20220208, end: 20220208
  2. PACLITAXEL [Suspect]
     Active Substance: PACLITAXEL
     Indication: Ovarian cancer
     Dosage: 285 MILLIGRAM, 1 TOTAL (COURSE 1 OF CARBOPLATIN AUC 6 (750MG) PACLITAXEL 175MG/M? (285MG))
     Route: 042
     Dates: start: 20220208, end: 20220208

REACTIONS (1)
  - Pancreatitis acute [Recovered/Resolved]

NARRATIVE: CASE EVENT DATE: 20220212
